FAERS Safety Report 24146895 (Version 1)
Quarter: 2024Q3

REPORT INFORMATION
  Report Type: Spontaneous
  Country: HU (occurrence: HU)
  Receive Date: 20240729
  Receipt Date: 20240729
  Transmission Date: 20241017
  Serious: Yes (Other)
  Sender: MYLAN
  Company Number: HU-MYLANLABS-2024M1069352

PATIENT
  Age: 3 Month
  Sex: Male

DRUGS (1)
  1. REVATIO [Suspect]
     Active Substance: SILDENAFIL CITRATE
     Indication: Pulmonary hypertension
     Dosage: 20 MILLIGRAM, QD (PER DAY)
     Route: 065
     Dates: start: 20231206

REACTIONS (1)
  - Off label use [Unknown]
